FAERS Safety Report 9645233 (Version 1)
Quarter: 2013Q4

REPORT INFORMATION
  Report Type: Spontaneous
  Country: US (occurrence: None)
  Receive Date: 20131023
  Receipt Date: 20131023
  Transmission Date: 20140711
  Serious: Yes (Death)
  Sender: FDA-Public Use
  Company Number: None

PATIENT
  Age: 63 Year
  Sex: Male
  Weight: 108.86 kg

DRUGS (4)
  1. VICTOZA [Suspect]
     Indication: TYPE 2 DIABETES MELLITUS
     Dosage: 18MG/3ML 2 PENS TO A BOX 0.2 ML = 1.2 MG DAILY INJECTION
     Dates: start: 2010, end: 2012
  2. INSULIN [Concomitant]
  3. LANTAS [Concomitant]
  4. MULTIVITAMIN [Concomitant]

REACTIONS (2)
  - Pancreatic carcinoma [None]
  - Lung neoplasm malignant [None]
